FAERS Safety Report 6507434-X (Version None)
Quarter: 2009Q4

REPORT INFORMATION
  Report Type: 
  Country: None (occurrence: None)
  Receive Date: 20091221
  Receipt Date: 20091119
  Transmission Date: 20100525
  Serious: No
  Sender: FDA-Public Use
  Company Number: US-BAYER-200940412NA

PATIENT
  Sex: Female

DRUGS (2)
  1. MIRENA [Suspect]
     Indication: DRUG USE FOR UNKNOWN INDICATION
     Dosage: CONTINUOUS
     Route: 015
     Dates: start: 20090601
  2. CORTISONE [Concomitant]
     Indication: RASH
     Dosage: UNKNOWN DOSAGE

REACTIONS (3)
  - ACNE [None]
  - RASH PAPULAR [None]
  - URTICARIA [None]
